FAERS Safety Report 7285949-7 (Version None)
Quarter: 2011Q1

REPORT INFORMATION
  Report Type: 
  Country: None (occurrence: None)
  Receive Date: 20110210
  Receipt Date: 20110131
  Transmission Date: 20110831
  Serious: Yes (Other)
  Sender: FDA-Public Use
  Company Number: US-GENZYME-CAMP-1001344

PATIENT
  Age: 57 Year

DRUGS (6)
  1. PROLEUKIN [Concomitant]
     Indication: DECREASED IMMUNE RESPONSIVENESS
     Dosage: 1 MU/M2 FOR 5 DAYS/WEEK (M-F) FOR 4 WEEKS, 2 WEEKS OFF, 2 CYCLES COMPLETED
     Route: 058
  2. FILGRASTIM [Concomitant]
     Indication: NEUTROPENIA
     Dosage: 5 MCG/KG, QD, UNTIL ANC WAS }1 X 10E9/L
     Route: 065
  3. CAMPATH [Suspect]
     Indication: STEM CELL TRANSPLANT
     Dosage: 20 MG, QDX5, COMPLETED DAY 0
     Route: 042
  4. FLUDARA [Suspect]
     Indication: STEM CELL TRANSPLANT
     Dosage: 30 MG/M2, QD X 4 DAYS
     Route: 065
  5. MYCOPHENOLATE [Suspect]
     Indication: PROPHYLAXIS AGAINST GRAFT VERSUS HOST DISEASE
     Dosage: 1 G, BID FOR 60 DAYS FOLLOWING TRANSPLANTATION
     Route: 065
  6. CYCLOPHOSPHAMIDE [Suspect]
     Indication: STEM CELL TRANSPLANT
     Dosage: 500 MG/M2, QD X 4 DAYS
     Route: 065

REACTIONS (2)
  - FATIGUE [None]
  - ACUTE GRAFT VERSUS HOST DISEASE IN SKIN [None]
